FAERS Safety Report 4563759-9 (Version None)
Quarter: 2005Q1

REPORT INFORMATION
  Report Type: 
  Country: None (occurrence: None)
  Receive Date: 20050121
  Receipt Date: 20050104
  Transmission Date: 20050727
  Serious: Yes (Other)
  Sender: FDA-Public Use
  Company Number: USA041183991

PATIENT
  Age: 84 Year
  Sex: Female
  Weight: 59 kg

DRUGS (15)
  1. FORTEO [Suspect]
     Indication: OSTEOPOROSIS
     Dosage: 20 UG/1 DAY
     Dates: start: 20040816, end: 20041027
  2. ARAVA [Concomitant]
  3. CELEBREX [Concomitant]
  4. IRON [Concomitant]
  5. PREDNISONE [Concomitant]
  6. CALCIUM GLUCONATE [Concomitant]
  7. SYNTHROID [Concomitant]
  8. DIGOXIN [Concomitant]
  9. COREG [Concomitant]
  10. LASIX [Concomitant]
  11. ALDACTONE [Concomitant]
  12. POTASSIUM CHLORIDE [Concomitant]
  13. MAGNESIUM [Concomitant]
  14. ZAROXOLYN [Concomitant]
  15. ALTACE [Concomitant]

REACTIONS (8)
  - BRONCHITIS ACUTE [None]
  - DRUG INTERACTION [None]
  - INJECTION SITE ERYTHEMA [None]
  - INTERSTITIAL LUNG DISEASE [None]
  - MALAISE [None]
  - PHARMACEUTICAL PRODUCT COMPLAINT [None]
  - RESPIRATORY DISORDER [None]
  - RHEUMATOID ARTHRITIS [None]
